FAERS Safety Report 4494643-7 (Version None)
Quarter: 2004Q4

REPORT INFORMATION
  Report Type: 
  Country: None (occurrence: None)
  Receive Date: 20041103
  Receipt Date: 20041025
  Transmission Date: 20050328
  Serious: Yes (Hospitalization)
  Sender: FDA-Public Use
  Company Number: 2004-10-1699

PATIENT
  Age: 41 Year
  Sex: Male
  Weight: 71 kg

DRUGS (1)
  1. PEG-INTRON [Suspect]
     Indication: HIV INFECTION
     Dosage: 1 MCG/KG SUBCUTANEOUS
     Route: 058
     Dates: start: 20040129, end: 20041014

REACTIONS (4)
  - DYSLALIA [None]
  - HEMIPARESIS [None]
  - LEUKOCYTOSIS [None]
  - MENINGITIS ASEPTIC [None]
